FAERS Safety Report 8815024 (Version 1)
Quarter: 2012Q4

REPORT INFORMATION
  Report Type: 
  Country: US (occurrence: US)
  Receive Date: 20120928
  Receipt Date: 20120928
  Transmission Date: 20130627
  Serious: Yes (Other)
  Sender: FDA-Public Use
  Company Number: US-WATSON-2012-16506

PATIENT
  Sex: Female
  Weight: 98 kg

DRUGS (2)
  1. LOW-OGESTREL [Suspect]
     Indication: MENSTRUATION IRREGULAR
     Dosage: 1 tab daily in the evening
     Route: 048
     Dates: start: 20120917
  2. LOW-OGESTREL [Suspect]
     Dosage: 1 tab daily in the evening
     Route: 048
     Dates: start: 201206, end: 20120916

REACTIONS (3)
  - Suicidal ideation [Recovering/Resolving]
  - Anxiety [Recovering/Resolving]
  - Depression [Recovering/Resolving]
